FAERS Safety Report 23347415 (Version 3)
Quarter: 2024Q4

REPORT INFORMATION
  Report Type: Spontaneous
  Country: PL (occurrence: PL)
  Receive Date: 20231228
  Receipt Date: 20241111
  Transmission Date: 20250115
  Serious: Yes (Hospitalization, Other)
  Sender: CHATTEM
  Company Number: None

PATIENT
  Age: 71 Year
  Sex: Female

DRUGS (11)
  1. TRIAMCINOLONE ACETONIDE [Suspect]
     Active Substance: TRIAMCINOLONE ACETONIDE
     Indication: Dermatomyositis
     Dosage: 4 MG, DAILY
     Route: 065
     Dates: start: 2020
  2. PREDNISONE [Suspect]
     Active Substance: PREDNISONE
     Indication: Dermatomyositis
     Dosage: 10 MG, DAILY
     Route: 065
     Dates: start: 2020
  3. LEFLUNOMIDE [Suspect]
     Active Substance: LEFLUNOMIDE
     Indication: Dermatomyositis
     Dosage: 20 MG, DAILY
     Route: 065
  4. METHYLPREDNISOLONE [Suspect]
     Active Substance: METHYLPREDNISOLONE
     Indication: Dermatomyositis
     Dosage: 8 MG, DAILY DOSE FURTHER MODIFIED
     Route: 048
     Dates: start: 2017
  5. CYCLOSPORINE [Suspect]
     Active Substance: CYCLOSPORINE
     Indication: Dermatomyositis
     Dosage: 200 MG, DAILY
     Route: 065
     Dates: start: 2020
  6. AZATHIOPRINE [Suspect]
     Active Substance: AZATHIOPRINE
     Indication: Dermatomyositis
     Dosage: 100 MG, DAILYDOSE FURTHER MODIFIED.
     Route: 065
     Dates: start: 2017
  7. MYCOPHENOLATE MOFETIL [Suspect]
     Active Substance: MYCOPHENOLATE MOFETIL
     Indication: Dermatomyositis
     Dosage: 1 G, DAILY
     Route: 065
  8. FLUDROCORTISONE [Suspect]
     Active Substance: FLUDROCORTISONE
     Indication: Product used for unknown indication
     Dosage: 100 UG, DAILY
     Route: 065
     Dates: start: 2020
  9. CHLOROQUINE [Suspect]
     Active Substance: CHLOROQUINE
     Indication: Dermatomyositis
     Dosage: 250 MG, DAILY
     Route: 065
  10. METHYLPREDNISOLONE SODIUM SUCCINATE [Suspect]
     Active Substance: METHYLPREDNISOLONE SODIUM SUCCINATE
     Indication: Dermatomyositis
     Dosage: 250 MG FOR 3 CONSECUTIVE DAYS, PULSE TREATMENT,
     Route: 042
     Dates: start: 2020
  11. PREDNISOLONE [Suspect]
     Active Substance: PREDNISOLONE
     Indication: Dermatomyositis
     Dosage: 60 MG, DAILY
     Route: 065
     Dates: start: 2016

REACTIONS (13)
  - Type V hyperlipidaemia [Unknown]
  - Varicose vein [Unknown]
  - Interstitial lung disease [Unknown]
  - Hypertension [Unknown]
  - Secondary adrenocortical insufficiency [Unknown]
  - Osteoporosis [Unknown]
  - Skin exfoliation [Unknown]
  - Muscle contracture [Unknown]
  - Skin disorder [Unknown]
  - Erythema [Unknown]
  - Muscular weakness [Unknown]
  - Petechiae [Unknown]
  - Oedema peripheral [Unknown]
